FAERS Safety Report 9178893 (Version 1)
Quarter: 2012Q4

REPORT INFORMATION
  Report Type: 
  Country: US (occurrence: US)
  Receive Date: 20121029
  Receipt Date: 20121029
  Transmission Date: 20130627
  Serious: No
  Sender: FDA-Public Use
  Company Number: US-JNJFOC-20120912444

PATIENT
  Sex: Female

DRUGS (12)
  1. INVEGA SUSTENNA [Suspect]
     Indication: PRODUCT USED FOR UNKNOWN INDICATION
     Route: 030
  2. INVEGA SUSTENNA [Suspect]
     Indication: PRODUCT USED FOR UNKNOWN INDICATION
     Route: 030
  3. INVEGA SUSTENNA [Suspect]
     Indication: PRODUCT USED FOR UNKNOWN INDICATION
     Route: 030
  4. INVEGA SUSTENNA [Suspect]
     Indication: PRODUCT USED FOR UNKNOWN INDICATION
     Route: 030
     Dates: start: 2012
  5. DITROPAN [Concomitant]
     Route: 048
  6. COLACE [Concomitant]
     Route: 048
  7. BISACODYL [Concomitant]
     Route: 065
  8. NORCO [Concomitant]
     Route: 065
  9. KLONOPIN [Concomitant]
     Route: 065
  10. CELEXA [Concomitant]
     Route: 065
  11. GABAPENTIN [Concomitant]
     Route: 065
  12. CYMBALTA [Concomitant]
     Route: 065

REACTIONS (1)
  - Injection site reaction [Not Recovered/Not Resolved]
